FAERS Safety Report 5398112-1 (Version None)
Quarter: 2007Q3

REPORT INFORMATION
  Report Type: 
  Country: None (occurrence: None)
  Receive Date: 20070726
  Receipt Date: 20070715
  Transmission Date: 20080115
  Serious: Yes (Other)
  Sender: FDA-Public Use
  Company Number: US-PFIZER INC-2007059849

PATIENT
  Sex: Male
  Weight: 77.272 kg

DRUGS (19)
  1. CHANTIX [Suspect]
     Indication: SMOKING CESSATION THERAPY
     Dosage: TEXT:EVERYDAY
  2. DHEA [Concomitant]
  3. CLONAZEPAM [Concomitant]
     Dosage: TEXT:0.5 THREE TIMES A DAY
  4. NIZORAL [Concomitant]
  5. CLONIDINE [Concomitant]
  6. PRIMIDONE [Concomitant]
  7. ALL OTHER THERAPEUTIC PRODUCTS [Concomitant]
     Dosage: TEXT:HALF A TABLET DAILY
  8. QUETIAPINE FUMARATE [Concomitant]
  9. TRAMADOL HCL [Concomitant]
  10. PLAVIX [Concomitant]
  11. BUPROPION HYDROCHLORIDE [Concomitant]
  12. MICARDIS [Concomitant]
  13. OTHER COMBINATIONS OF NUTRIENTS [Concomitant]
  14. GINSANA [Concomitant]
  15. CHONDROITIN/GLUCOSAMINE [Concomitant]
     Indication: ARTHRALGIA
     Dosage: TEXT:TRIPLE STRENGTH
  16. VITAMIN CAP [Concomitant]
  17. HERBALIFE PRODUCTS [Concomitant]
  18. MILK THISTLE [Concomitant]
  19. VITAMIN B-COMPLEX, OTHER COMBINATIONS [Concomitant]

REACTIONS (3)
  - ABNORMAL DREAMS [None]
  - JUDGEMENT IMPAIRED [None]
  - SOMNOLENCE [None]
